FAERS Safety Report 8922190 (Version 1)
Quarter: 2012Q4

REPORT INFORMATION
  Report Type: 
  Country: US (occurrence: None)
  Receive Date: 20121120
  Receipt Date: 20121120
  Transmission Date: 20130627
  Serious: No
  Sender: FDA-Public Use
  Company Number: None

PATIENT
  Sex: Female
  Weight: 62.32 kg

DRUGS (1)
  1. ZOLEDRONIC ACID [Suspect]

REACTIONS (5)
  - Breast cancer metastatic [None]
  - Malignant neoplasm progression [None]
  - Metastases to bone [None]
  - Osteonecrosis of jaw [None]
  - Oral disorder [None]
